FAERS Safety Report 14297237 (Version 1)
Quarter: 2017Q4

REPORT INFORMATION
  Report Type: Spontaneous
  Country: US (occurrence: US)
  Receive Date: 20171218
  Receipt Date: 20171218
  Transmission Date: 20180321
  Serious: Yes (Disabling, Other)
  Sender: FDA-Public Use
  Company Number: None

PATIENT
  Age: 61 Year
  Sex: Male
  Weight: 90.72 kg

DRUGS (15)
  1. ISOSORBIDE. [Concomitant]
     Active Substance: ISOSORBIDE
  2. NYSTATIN. [Concomitant]
     Active Substance: NYSTATIN
  3. VITAMIN B12 [Concomitant]
     Active Substance: CYANOCOBALAMIN
  4. MELATONIN [Concomitant]
     Active Substance: MELATONIN
  5. NORFLEX [Concomitant]
     Active Substance: ORPHENADRINE CITRATE
  6. LASIX [Concomitant]
     Active Substance: FUROSEMIDE
  7. BACTRIM DS [Suspect]
     Active Substance: SULFAMETHOXAZOLE\TRIMETHOPRIM
     Indication: LOCALISED INFECTION
     Route: 048
     Dates: start: 20170928, end: 20171007
  8. XANAX [Concomitant]
     Active Substance: ALPRAZOLAM
  9. CARVEDILOL. [Concomitant]
     Active Substance: CARVEDILOL
  10. NITRO TABLETS [Concomitant]
  11. LIPITOR [Concomitant]
     Active Substance: ATORVASTATIN CALCIUM
  12. ALBUTEROL SULPHATE [Concomitant]
     Active Substance: ALBUTEROL
  13. ASPIRIN. [Concomitant]
     Active Substance: ASPIRIN
  14. PERCOCET [Concomitant]
     Active Substance: ACETAMINOPHEN\OXYCODONE HYDROCHLORIDE
  15. ANORO ELLIPTA [Concomitant]
     Active Substance: UMECLIDINIUM BROMIDE\VILANTEROL TRIFENATATE

REACTIONS (3)
  - Decreased appetite [None]
  - Oral candidiasis [None]
  - Temperature intolerance [None]
